FAERS Safety Report 9256994 (Version 1)
Quarter: 2013Q2

REPORT INFORMATION
  Report Type: Spontaneous
  Country: US (occurrence: None)
  Receive Date: 20130424
  Receipt Date: 20130424
  Transmission Date: 20140414
  Serious: Yes (Other)
  Sender: FDA-Public Use
  Company Number: None

PATIENT
  Age: 43 Year
  Sex: Female
  Weight: 63.5 kg

DRUGS (6)
  1. GILENYA [Suspect]
     Indication: RELAPSING-REMITTING MULTIPLE SCLEROSIS
     Route: 048
     Dates: start: 20120229, end: 20130211
  2. TRAZODONE [Concomitant]
  3. EFFEXOR ER [Concomitant]
  4. NEURONTIN [Concomitant]
  5. VIT D [Concomitant]
  6. AMPYRA [Concomitant]

REACTIONS (1)
  - Malignant melanoma [None]
